FAERS Safety Report 8071772-2 (Version None)
Quarter: 2012Q1

REPORT INFORMATION
  Report Type: 
  Country: None (occurrence: None)
  Receive Date: 20120126
  Receipt Date: 20120118
  Transmission Date: 20120608
  Serious: Yes (Hospitalization)
  Sender: FDA-Public Use
  Company Number: US-BIOGENIDEC-2009BI031956

PATIENT
  Age: 45 Year
  Sex: Female
  Weight: 72 kg

DRUGS (3)
  1. AVONEX [Suspect]
     Route: 030
     Dates: start: 20110203
  2. AVONEX [Suspect]
     Indication: MULTIPLE SCLEROSIS
     Route: 030
     Dates: start: 20030103, end: 20030101
  3. AVONEX [Suspect]
     Route: 030
     Dates: start: 20030101, end: 20091006

REACTIONS (7)
  - MULTIPLE SCLEROSIS RELAPSE [None]
  - BREAST CANCER STAGE II [None]
  - BENIGN BREAST NEOPLASM [None]
  - CELLULITIS [None]
  - BREAST OEDEMA [None]
  - OEDEMA PERIPHERAL [None]
  - MOBILITY DECREASED [None]
